FAERS Safety Report 7797853-6 (Version None)
Quarter: 2011Q4

REPORT INFORMATION
  Report Type: 
  Country: None (occurrence: None)
  Receive Date: 20111005
  Receipt Date: 20110928
  Transmission Date: 20120403
  Serious: Yes (Hospitalization)
  Sender: FDA-Public Use
  Company Number: JP-BRISTOL-MYERS SQUIBB COMPANY-16119729

PATIENT
  Age: 6 Decade
  Sex: Male

DRUGS (3)
  1. REYATAZ [Suspect]
     Indication: HIV INFECTION
     Route: 048
     Dates: start: 20101014, end: 20101107
  2. NORVIR [Suspect]
     Indication: HIV INFECTION
     Route: 048
     Dates: start: 20101014, end: 20101107
  3. EPZICOM [Suspect]
     Indication: HIV INFECTION
     Dosage: 1DF:1TABS
     Route: 048
     Dates: start: 20101014

REACTIONS (3)
  - BLOOD UREA INCREASED [None]
  - RENAL IMPAIRMENT [None]
  - BLOOD CREATININE INCREASED [None]
